FAERS Safety Report 16218853 (Version 1)
Quarter: 2019Q2

REPORT INFORMATION
  Report Type: Report from Study
  Country: US (occurrence: US)
  Receive Date: 20190419
  Receipt Date: 20190419
  Transmission Date: 20190711
  Serious: Yes (Other)
  Sender: FDA-Public Use
  Company Number: US-BAYER-2019-021053

PATIENT
  Age: 65 Year
  Sex: Male

DRUGS (7)
  1. FENTANYL. [Concomitant]
     Active Substance: FENTANYL
     Dosage: UNK
  2. NORCO [Concomitant]
     Active Substance: ACETAMINOPHEN\HYDROCODONE BITARTRATE
     Dosage: UNK
  3. STIVARGA [Suspect]
     Active Substance: REGORAFENIB
     Indication: COLON CANCER
     Dosage: 160 MG DAILY WHOLE WITH LOW FAT BREAKFAST AT SAME TIME DAILY FOR 21 DAYS EVERY 28 DAYS
     Route: 048
     Dates: start: 201901, end: 2019
  4. STIVARGA [Suspect]
     Active Substance: REGORAFENIB
     Indication: COLON CANCER
     Dosage: 160 MG DAILY WHOLE WITH LOW FAT BREAKFAST AT SAME TIME DAILY FOR 21 DAYS EVERY 28 DAYS
     Route: 048
     Dates: start: 201902
  5. DIPHENOXYLATE [Concomitant]
     Active Substance: DIPHENOXYLATE
     Dosage: UNK
  6. PANTOPRAZOLE [PANTOPRAZOLE SODIUM SESQUIHYDRATE] [Concomitant]
     Dosage: UNK
  7. MULTIVITAMIN [VITAMINS NOS] [Concomitant]
     Dosage: UNK

REACTIONS (6)
  - Therapeutic product ineffective [None]
  - Diarrhoea [Not Recovered/Not Resolved]
  - Stoma site irritation [Recovered/Resolved]
  - Nausea [Recovered/Resolved]
  - Diarrhoea [Recovered/Resolved]
  - Fatigue [Recovered/Resolved]

NARRATIVE: CASE EVENT DATE: 2019
